FAERS Safety Report 9204026 (Version 1)
Quarter: 2013Q2

REPORT INFORMATION
  Report Type: Spontaneous
  Country: ZA (occurrence: ZA)
  Receive Date: 20130402
  Receipt Date: 20130402
  Transmission Date: 20140414
  Serious: Yes (Other)
  Sender: FDA-Public Use
  Company Number: ZA-ELI_LILLY_AND_COMPANY-ZA201303007711

PATIENT
  Age: 54 Year
  Sex: Female

DRUGS (6)
  1. STRATTERA [Suspect]
     Dosage: 25 MG, UNK
     Dates: start: 20130220
  2. STRATTERA [Suspect]
     Dosage: 40 MG, UNK
  3. STRATTERA [Suspect]
     Dosage: 60 MG, UNK
  4. STRATTERA [Suspect]
     Dosage: 25 MG, UNK
  5. CIPRALEX [Concomitant]
  6. CLOPIDOGREL [Concomitant]
     Indication: DEEP VEIN THROMBOSIS

REACTIONS (2)
  - Syncope [Unknown]
  - Muscular weakness [Unknown]
